FAERS Safety Report 13091823 (Version 1)
Quarter: 2017Q1

REPORT INFORMATION
  Report Type: Spontaneous
  Country: US (occurrence: US)
  Receive Date: 20170106
  Receipt Date: 20170106
  Transmission Date: 20170428
  Serious: Yes (Life-Threatening, Hospitalization, Other)
  Sender: FDA-Public Use
  Company Number: US-ZYDUS-013058

PATIENT
  Age: 71 Year
  Sex: Male

DRUGS (2)
  1. HEPARIN [Suspect]
     Active Substance: HEPARIN SODIUM
     Indication: DEEP VEIN THROMBOSIS
     Route: 065
  2. WARFARIN [Suspect]
     Active Substance: WARFARIN
     Indication: SUPERIOR VENA CAVA SYNDROME
     Route: 065

REACTIONS (9)
  - Chest pain [Unknown]
  - Haematoma [Unknown]
  - Nausea [Unknown]
  - Diarrhoea [Unknown]
  - Abdominal pain [Unknown]
  - Pneumonia [Unknown]
  - Device occlusion [Unknown]
  - Respiratory failure [Unknown]
  - Vomiting [Unknown]
